FAERS Safety Report 22223877 (Version 1)
Quarter: 2023Q2

REPORT INFORMATION
  Report Type: Spontaneous
  Country: US (occurrence: None)
  Receive Date: 20230417
  Receipt Date: 20230417
  Transmission Date: 20230721
  Serious: Yes (Hospitalization)
  Sender: FDA-Public Use
  Company Number: None

PATIENT
  Age: 74 Year
  Sex: Male
  Weight: 98 kg

DRUGS (2)
  1. FLUDARABINE [Suspect]
     Active Substance: FLUDARABINE PHOSPHATE
  2. CYCLOPHOSPHAMIDE [Suspect]
     Active Substance: CYCLOPHOSPHAMIDE

REACTIONS (16)
  - Cytokine release syndrome [None]
  - Hypotension [None]
  - Acute respiratory failure [None]
  - Hypoxia [None]
  - Acute kidney injury [None]
  - Neurotoxicity [None]
  - C-reactive protein increased [None]
  - Serum ferritin increased [None]
  - Somnolence [None]
  - Confusional state [None]
  - Encephalopathy [None]
  - Aphasia [None]
  - Mental status changes [None]
  - Unresponsive to stimuli [None]
  - Immune effector cell-associated neurotoxicity syndrome [None]
  - Haemophagocytic lymphohistiocytosis [None]

NARRATIVE: CASE EVENT DATE: 20230214
